FAERS Safety Report 9836934 (Version 1)
Quarter: 2013Q4

REPORT INFORMATION
  Report Type: Spontaneous
  Country: US (occurrence: None)
  Receive Date: 20131120
  Receipt Date: 20131120
  Transmission Date: 20140711
  Serious: No
  Sender: FDA-Public Use
  Company Number: 1000048871

PATIENT
  Age: 44 Year
  Sex: Female

DRUGS (7)
  1. VIIBRYD (VILAZODONE HYDROCHLORIDE) (10 MILLIGRAM, TABLETS) [Suspect]
     Indication: DEPRESSION
     Route: 048
     Dates: start: 20130910, end: 20130911
  2. VIIBRYD (VILAZODONE HYDROCHLORIDE) (20 MILLIGRAM, TABLETS) [Suspect]
     Indication: DEPRESSION
     Route: 048
     Dates: start: 20130912, end: 20130913
  3. KLONOPIN (CLONAZEPAM) [Concomitant]
  4. SUMATRIPTAN (SUMATRIPTAN) [Concomitant]
  5. TOPAMAX (TOPIRAMATE) [Concomitant]
  6. ZENAFLEX (TIZANIDINE HYDROCHLORIDE) [Concomitant]
  7. ALLEGRA [Concomitant]

REACTIONS (2)
  - Headache [None]
  - Insomnia [None]
